FAERS Safety Report 8217916-0 (Version None)
Quarter: 2012Q1

REPORT INFORMATION
  Report Type: 
  Country: None (occurrence: None)
  Receive Date: 20120319
  Receipt Date: 20120305
  Transmission Date: 20120608
  Serious: Yes (Other)
  Sender: FDA-Public Use
  Company Number: US-ELI_LILLY_AND_COMPANY-US201203001353

PATIENT
  Sex: Female

DRUGS (1)
  1. CYMBALTA [Suspect]
     Indication: DEPRESSION
     Dosage: 30 MG, UNKNOWN
     Dates: start: 20101101

REACTIONS (4)
  - DYSPHAGIA [None]
  - DRUG INEFFECTIVE [None]
  - GASTROINTESTINAL TUBE INSERTION [None]
  - WRONG TECHNIQUE IN DRUG USAGE PROCESS [None]
